FAERS Safety Report 4611791-9 (Version None)
Quarter: 2005Q1

REPORT INFORMATION
  Report Type: 
  Country: None (occurrence: None)
  Receive Date: 20050308
  Receipt Date: 20041201
  Transmission Date: 20050727
  Serious: Yes (Other)
  Sender: FDA-Public Use
  Company Number: 2004UW24651

PATIENT
  Age: 53 Year
  Sex: Female

DRUGS (8)
  1. CRESTOR [Suspect]
     Indication: HYPERCHOLESTEROLAEMIA
     Dosage: 40 MG PO
     Route: 048
  2. AVANDIA [Concomitant]
  3. ACCUPRIL [Concomitant]
  4. METFORMIN HCL [Concomitant]
  5. TIAZAC [Concomitant]
  6. DIOVAN [Concomitant]
  7. LEXAPRO [Concomitant]
  8. MULTI-VITAMINS [Concomitant]

REACTIONS (2)
  - BLOOD GLUCOSE INCREASED [None]
  - GLYCOSYLATED HAEMOGLOBIN INCREASED [None]
